FAERS Safety Report 9391259 (Version 3)
Quarter: 2013Q3

REPORT INFORMATION
  Report Type: Report from Study
  Country: US (occurrence: US)
  Receive Date: 20130709
  Receipt Date: 20130806
  Transmission Date: 20140515
  Serious: Yes (Hospitalization)
  Sender: FDA-Public Use
  Company Number: US-ACTELION-A-NJ2013-84461

PATIENT
  Age: 63 Year
  Sex: Female

DRUGS (3)
  1. TRACLEER [Suspect]
     Indication: PULMONARY HYPERTENSION
     Dosage: UNK
     Route: 048
     Dates: start: 20121130
  2. SILDENAFIL [Concomitant]
  3. TYVASO [Concomitant]
     Dosage: UNK
     Dates: end: 201306

REACTIONS (6)
  - Pulmonary oedema [Recovered/Resolved]
  - Bronchial disorder [Recovered/Resolved]
  - Blood pressure decreased [Recovered/Resolved]
  - Pulmonary arterial pressure increased [Recovered/Resolved]
  - Dyspnoea [Recovered/Resolved]
  - Asthenia [Unknown]
